FAERS Safety Report 6099496-1 (Version None)
Quarter: 2009Q1

REPORT INFORMATION
  Report Type: 
  Country: None (occurrence: None)
  Receive Date: 20090303
  Receipt Date: 20090220
  Transmission Date: 20090719
  Serious: Yes (Death)
  Sender: FDA-Public Use
  Company Number: IN-BAXTER-2009BH003058

PATIENT
  Age: 77 Year
  Sex: Male
  Weight: 65 kg

DRUGS (12)
  1. DIANEAL [Suspect]
     Indication: RENAL FAILURE CHRONIC
     Route: 033
     Dates: start: 20080101, end: 20090101
  2. DIANEAL [Suspect]
     Route: 033
     Dates: start: 20090101, end: 20090219
  3. DIANEAL [Suspect]
     Route: 033
     Dates: start: 20090101, end: 20090219
  4. DIANEAL [Suspect]
     Route: 033
     Dates: start: 20090101, end: 20090219
  5. DIANEAL [Suspect]
     Route: 033
     Dates: start: 20090101, end: 20090219
  6. CLOPILET [Concomitant]
     Indication: DRUG USE FOR UNKNOWN INDICATION
     Route: 065
     Dates: end: 20090219
  7. ROCALTROL [Concomitant]
     Indication: DRUG USE FOR UNKNOWN INDICATION
     Route: 065
     Dates: end: 20090219
  8. NEPHROCAPS [Concomitant]
     Indication: DRUG USE FOR UNKNOWN INDICATION
     Route: 065
     Dates: end: 20090219
  9. BECOSULE [Concomitant]
     Indication: DRUG USE FOR UNKNOWN INDICATION
     Route: 065
     Dates: end: 20090219
  10. SHELCAL [Concomitant]
     Indication: DRUG USE FOR UNKNOWN INDICATION
     Route: 065
     Dates: end: 20090219
  11. PAN 40 [Concomitant]
     Indication: DRUG USE FOR UNKNOWN INDICATION
     Route: 065
     Dates: end: 20090219
  12. FOSEAL [Concomitant]
     Indication: DRUG USE FOR UNKNOWN INDICATION
     Route: 065
     Dates: end: 20090219

REACTIONS (1)
  - CARDIAC ARREST [None]
